FAERS Safety Report 4695166-2 (Version None)
Quarter: 2005Q2

REPORT INFORMATION
  Report Type: 
  Country: None (occurrence: None)
  Receive Date: 20050620
  Receipt Date: 20050531
  Transmission Date: 20051028
  Serious: Yes (Disabling)
  Sender: FDA-Public Use
  Company Number: DE-MERCK-0505DEU00222

PATIENT
  Age: 51 Year
  Sex: Male

DRUGS (5)
  1. PRIMAXIN [Suspect]
     Indication: COMPLEX REGIONAL PAIN SYNDROME
     Route: 041
     Dates: start: 20040229, end: 20040305
  2. PRIMAXIN [Suspect]
     Indication: SURGERY
     Route: 041
     Dates: start: 20040229, end: 20040305
  3. CLINDAMYCIN [Concomitant]
     Route: 042
     Dates: start: 20040229, end: 20040305
  4. CEFUROXIME AXETIL [Concomitant]
     Route: 048
     Dates: start: 20040305, end: 20040312
  5. CLINDAMYCIN [Concomitant]
     Route: 048
     Dates: start: 20040305, end: 20040312

REACTIONS (2)
  - DEAFNESS [None]
  - HYPOACUSIS [None]
